FAERS Safety Report 17607578 (Version 1)
Quarter: 2020Q1

REPORT INFORMATION
  Report Type: Spontaneous
  Country: US (occurrence: US)
  Receive Date: 20200331
  Receipt Date: 20200331
  Transmission Date: 20200409
  Serious: No
  Sender: FDA-Public Use
  Company Number: US-CELGENEUS-USA-20200308435

PATIENT
  Sex: Female
  Weight: 50.39 kg

DRUGS (2)
  1. THALOMID [Suspect]
     Active Substance: THALIDOMIDE
     Indication: ANAEMIA
     Dosage: 100 MILLIGRAM
     Route: 048
     Dates: start: 202002
  2. THALOMID [Suspect]
     Active Substance: THALIDOMIDE
     Indication: OFF LABEL USE

REACTIONS (1)
  - Seasonal allergy [Unknown]

NARRATIVE: CASE EVENT DATE: 2020
